FAERS Safety Report 9183398 (Version 1)
Quarter: 2012Q4

REPORT INFORMATION
  Report Type: 
  Country: GB (occurrence: GB)
  Receive Date: 20121101
  Receipt Date: 20121101
  Transmission Date: 20130627
  Serious: Yes (Hospitalization)
  Sender: FDA-Public Use
  Company Number: GB-ROCHE-1151253

PATIENT
  Age: 45 Year
  Sex: Female

DRUGS (21)
  1. MYCOPHENOLATE MOFETIL [Suspect]
     Indication: PRODUCT USED FOR UNKNOWN INDICATION
     Route: 065
  2. BRILIQUE [Suspect]
     Indication: PRODUCT USED FOR UNKNOWN INDICATION
     Route: 065
  3. MINOCYCLINE [Suspect]
     Indication: PRODUCT USED FOR UNKNOWN INDICATION
     Route: 065
  4. ASPIRIN [Concomitant]
     Route: 065
  5. CODEINE [Concomitant]
     Route: 065
  6. CYCLIZINE [Concomitant]
     Route: 065
  7. FUROSEMIDE [Concomitant]
     Route: 065
  8. GLYCERYL TRINITRATE [Concomitant]
     Route: 065
  9. LACTULOSE [Concomitant]
     Route: 065
  10. LANSOPRAZOLE [Concomitant]
     Route: 065
  11. MORPHINE HYDROCHLORIDE [Concomitant]
     Route: 065
  12. PARACETAMOL [Concomitant]
     Route: 065
  13. PIZOTIFEN [Concomitant]
     Route: 065
  14. RAMIPRIL [Concomitant]
     Route: 065
  15. SALBUTAMOL [Concomitant]
     Route: 065
  16. SENNA [Concomitant]
     Route: 065
  17. SERETIDE [Concomitant]
     Route: 065
  18. SIMVASINE [Concomitant]
     Route: 065
  19. SODIUM CROMOGLICATE [Concomitant]
     Route: 065
  20. SPIRIVA [Concomitant]
     Route: 065
  21. SPIRONOLACTONE [Concomitant]
     Route: 065

REACTIONS (3)
  - Liver function test abnormal [Recovering/Resolving]
  - Hepatitis [Recovering/Resolving]
  - Hepatotoxicity [Unknown]
